FAERS Safety Report 8701493 (Version 2)
Quarter: 2013Q4

REPORT INFORMATION
  Report Type: Spontaneous
  Country: US (occurrence: US)
  Receive Date: 20120802
  Receipt Date: 20131106
  Transmission Date: 20140711
  Serious: Yes (Other)
  Sender: FDA-Public Use
  Company Number: US-MSD-1207USA010702

PATIENT
  Age: 72 Year
  Sex: Female

DRUGS (14)
  1. ZOCOR [Suspect]
     Dosage: UNK, QD
     Route: 048
  2. ATACAND [Suspect]
     Dosage: UNK
     Route: 048
  3. ATACAND PLUS [Suspect]
     Dosage: 16+2.5 MG, QD
     Route: 048
  4. ATACAND PLUS [Suspect]
     Dosage: 16+5MG QD
     Route: 048
  5. DOLAMIN FLEX [Concomitant]
     Route: 048
  6. ACETAMINOPHEN [Concomitant]
     Dosage: UNK, BID
  7. GINKGO [Concomitant]
     Dosage: UNK
     Route: 048
  8. GINKGO [Concomitant]
     Dosage: UNK UNK, TID
     Route: 048
  9. GINKGO [Concomitant]
     Dosage: UNK UNK, TID
     Route: 048
  10. GINKGO [Concomitant]
     Dosage: UNK UNK, TID
     Route: 048
  11. OMEPRAZOLE [Concomitant]
     Route: 048
  12. OMEPRAZOLE [Concomitant]
     Route: 048
  13. GOTU KOLA [Concomitant]
     Dosage: UNK, TID
     Route: 048
  14. NEOSALDINA (CAFFEINE (+) DIPYRONE (+) ISOMETHEPTENE HYDROCHLORIDE) [Concomitant]
     Route: 048

REACTIONS (9)
  - Cholecystitis [Unknown]
  - Arthralgia [Unknown]
  - Drug ineffective [Unknown]
  - Anxiety [Unknown]
  - Cholelithiasis [Unknown]
  - Insomnia [Unknown]
  - Hypercholesterolaemia [Unknown]
  - Blood pressure inadequately controlled [Unknown]
  - Hypotension [Unknown]
